FAERS Safety Report 10199144 (Version 1)
Quarter: 2014Q2

REPORT INFORMATION
  Report Type: Spontaneous
  Country: DE (occurrence: DE)
  Receive Date: 20140527
  Receipt Date: 20140527
  Transmission Date: 20141212
  Serious: Yes (Congenital Anomaly)
  Sender: FDA-Public Use
  Company Number: DE-TEVA-483793GER

PATIENT
  Age: 37 Year
  Sex: Female
  Weight: 97 kg

DRUGS (5)
  1. CONVULSOFIN [Suspect]
     Indication: EPILEPSY
     Dosage: 530 MILLIGRAM DAILY;
     Route: 048
  2. LAMOTRI HEXAL [Suspect]
     Indication: EPILEPSY
     Dosage: 200 MILLIGRAM DAILY;
     Route: 048
  3. VIANI FORTE [Concomitant]
     Indication: ASTHMA
     Dosage: 100 MICROGRAM DAILY; 100 (MICROGAM/D (2X50))/1000 (MICROGRAM/D (2X500))
     Route: 055
  4. TROMPHYLLIN 300 MG [Concomitant]
     Indication: ASTHMA
     Route: 048
  5. PREDNISOLON [Concomitant]
     Indication: ASTHMA
     Route: 048

REACTIONS (3)
  - Selective abortion [Unknown]
  - Maternal exposure during pregnancy [None]
  - Pregnancy with contraceptive device [None]
